FAERS Safety Report 5144287-9 (Version None)
Quarter: 2006Q4

REPORT INFORMATION
  Report Type: 
  Country: None (occurrence: None)
  Receive Date: 20061106
  Receipt Date: 20060804
  Transmission Date: 20070319
  Serious: Yes (Other)
  Sender: FDA-Public Use
  Company Number: US-ROCHE-458676

PATIENT
  Age: 15 Year
  Sex: Male
  Weight: 68 kg

DRUGS (1)
  1. ACCUTANE [Suspect]
     Indication: DRUG USE FOR UNKNOWN INDICATION
     Route: 048
     Dates: start: 19860415, end: 19881015

REACTIONS (4)
  - CHOLANGITIS SCLEROSING [None]
  - CHRONIC HEPATIC FAILURE [None]
  - CROHN'S DISEASE [None]
  - HEPATIC CIRRHOSIS [None]
